FAERS Safety Report 19752167 (Version 1)
Quarter: 2021Q3

REPORT INFORMATION
  Report Type: Spontaneous
  Country: RU (occurrence: RU)
  Receive Date: 20210826
  Receipt Date: 20210826
  Transmission Date: 20211014
  Serious: Yes (Other)
  Sender: FDA-Public Use
  Company Number: RU-ROCHE-2895526

PATIENT
  Age: 85 Year
  Sex: Female

DRUGS (2)
  1. COTELLIC [Suspect]
     Active Substance: COBIMETINIB
     Indication: MALIGNANT MELANOMA
     Dosage: 3 TABLETS 20 MG, 28?DAYS CYCLE, INTERVAL 7 DAYS?MEDICATION SHOULD BE TAKEN WITH FOOD OR WITHOUT FOOD
     Route: 065
     Dates: start: 202002
  2. ZELBORAF [Suspect]
     Active Substance: VEMURAFENIB
     Indication: MALIGNANT MELANOMA
     Dosage: MEDICATION SHOULD BE TAKEN WITH FOOD OR WITHOUT FOOD, 4 TABLETS 240 MG.
     Route: 065
     Dates: start: 202002

REACTIONS (1)
  - Skin toxicity [Unknown]
